FAERS Safety Report 8111832-0 (Version None)
Quarter: 2012Q1

REPORT INFORMATION
  Report Type: 
  Country: None (occurrence: None)
  Receive Date: 20120202
  Receipt Date: 20120202
  Transmission Date: 20120608
  Serious: Yes (Other)
  Sender: FDA-Public Use
  Company Number: None

PATIENT
  Age: 81 Year
  Sex: Female
  Weight: 40.8237 kg

DRUGS (3)
  1. PREDNISONE [Suspect]
     Indication: EMPHYSEMA
     Dosage: STAGGERED FROM 4 PILLS DAILY TO  (1) DAILY HAD 7 TIMES THIS YEAR
     Dates: start: 20111016, end: 20111026
  2. PREDNISONE [Suspect]
     Indication: CHRONIC OBSTRUCTIVE PULMONARY DISEASE
     Dosage: STAGGERED FROM 4 PILLS DAILY TO  (1) DAILY HAD 7 TIMES THIS YEAR
     Dates: start: 20111016, end: 20111026
  3. PREDNISONE [Suspect]
     Indication: BRONCHIAL DISORDER
     Dosage: STAGGERED FROM 4 PILLS DAILY TO  (1) DAILY HAD 7 TIMES THIS YEAR
     Dates: start: 20111016, end: 20111026

REACTIONS (1)
  - VISION BLURRED [None]
